FAERS Safety Report 4566557-5 (Version None)
Quarter: 2005Q1

REPORT INFORMATION
  Report Type: 
  Country: None (occurrence: None)
  Receive Date: 20050201
  Receipt Date: 20050121
  Transmission Date: 20050727
  Serious: Yes (Other)
  Sender: FDA-Public Use
  Company Number: PHFR2005GB00668

PATIENT
  Age: 48 Year
  Sex: Female

DRUGS (1)
  1. LAMISIL [Suspect]
     Indication: PSORIASIS
     Dosage: 250MG/DAY
     Route: 048
     Dates: start: 20040421, end: 20040520

REACTIONS (3)
  - AGEUSIA [None]
  - PSORIASIS [None]
  - RASH [None]
